FAERS Safety Report 15685517 (Version 1)
Quarter: 2018Q4

REPORT INFORMATION
  Report Type: Spontaneous
  Country: US (occurrence: US)
  Receive Date: 20181204
  Receipt Date: 20181204
  Transmission Date: 20190205
  Serious: Yes (Hospitalization)
  Sender: FDA-Public Use
  Company Number: US-ANTARES PHARMA, INC.-2017-SPO-ME-0474

PATIENT
  Age: 16 Year
  Sex: Male
  Weight: 50.5 kg

DRUGS (29)
  1. METHOTREXATE. [Suspect]
     Active Substance: METHOTREXATE
     Dosage: 15 MG, UNK
     Route: 037
     Dates: start: 20170705, end: 20170705
  2. METHOTREXATE. [Suspect]
     Active Substance: METHOTREXATE
     Dosage: 6100 MG, UNK
     Route: 042
     Dates: start: 20170922, end: 20170922
  3. RUXOLITINIB [Suspect]
     Active Substance: RUXOLITINIB
     Indication: ACUTE LYMPHOCYTIC LEUKAEMIA
     Dosage: 85 MG, BID
     Dates: start: 20170619, end: 20170704
  4. VINCRISTINE [Suspect]
     Active Substance: VINCRISTINE
     Dosage: 2 MG, SINGLE
     Route: 042
     Dates: start: 20170814, end: 20170814
  5. VINCRISTINE [Suspect]
     Active Substance: VINCRISTINE
     Dosage: 2 UNK, UNK
     Route: 042
     Dates: start: 20170829
  6. CYTARABINE. [Suspect]
     Active Substance: CYTARABINE
     Dosage: 130 MG, QD
     Route: 058
     Dates: start: 20170724, end: 20170727
  7. METHOTREXATE. [Suspect]
     Active Substance: METHOTREXATE
     Dosage: 8150 MG, UNK
     Route: 042
     Dates: start: 20170829
  8. VINCRISTINE [Suspect]
     Active Substance: VINCRISTINE
     Indication: ACUTE LYMPHOCYTIC LEUKAEMIA
     Dosage: 2 MG, SINGLE
     Route: 042
     Dates: start: 20170703, end: 20170703
  9. LEUCOVORIN                         /00566701/ [Suspect]
     Active Substance: LEUCOVORIN
     Indication: ACUTE LYMPHOCYTIC LEUKAEMIA
     Dosage: 24 MG, QID
     Route: 042
     Dates: start: 20170831, end: 20170906
  10. CYTARABINE. [Suspect]
     Active Substance: CYTARABINE
     Indication: ACUTE LYMPHOCYTIC LEUKAEMIA
     Dosage: 130 MG, QD
     Route: 058
     Dates: start: 20170619, end: 20170622
  11. CYCLOPHOSPHAMIDE. [Suspect]
     Active Substance: CYCLOPHOSPHAMIDE
     Dosage: 1700 MG, SINGLE
     Route: 042
     Dates: start: 20170624
  12. CYCLOPHOSPHAMIDE. [Suspect]
     Active Substance: CYCLOPHOSPHAMIDE
     Indication: ACUTE LYMPHOCYTIC LEUKAEMIA
     Dosage: 1740 MG, SINGLE
     Route: 042
     Dates: start: 20170619, end: 20170619
  13. METHOTREXATE. [Suspect]
     Active Substance: METHOTREXATE
     Indication: ACUTE LYMPHOCYTIC LEUKAEMIA
     Dosage: 15 MG, UNK
     Route: 037
     Dates: start: 20170620, end: 20170620
  14. METHOTREXATE. [Suspect]
     Active Substance: METHOTREXATE
     Dosage: 6100 MG, UNK
     Route: 042
     Dates: start: 20170829
  15. RUXOLITINIB [Suspect]
     Active Substance: RUXOLITINIB
     Dosage: 80 MG, BID
     Route: 048
     Dates: start: 20170829, end: 20170906
  16. MERCAPTOPURINE. [Suspect]
     Active Substance: MERCAPTOPURINE
     Indication: ACUTE LYMPHOCYTIC LEUKAEMIA
     Dosage: 725 MG, QWK
     Route: 048
     Dates: start: 20170619, end: 20170702
  17. MERCAPTOPURINE. [Suspect]
     Active Substance: MERCAPTOPURINE
     Dosage: 700 MG, QWK
     Route: 048
     Dates: start: 20170724, end: 20170905
  18. MERCAPTOPURINE. [Suspect]
     Active Substance: MERCAPTOPURINE
     Dosage: 275 MG, QWK
     Route: 048
     Dates: start: 20170829, end: 20170906
  19. METHOTREXATE. [Suspect]
     Active Substance: METHOTREXATE
     Dosage: 15 MG, UNK
     Route: 037
     Dates: start: 20170627, end: 20170627
  20. METHOTREXATE. [Suspect]
     Active Substance: METHOTREXATE
     Dosage: 15 MG, UNK
     Route: 037
     Dates: start: 20170711, end: 20170711
  21. VINCRISTINE [Suspect]
     Active Substance: VINCRISTINE
     Dosage: 2 MG, SINGLE
     Route: 042
     Dates: start: 20170710, end: 20170710
  22. METHOTREXATE. [Suspect]
     Active Substance: METHOTREXATE
     Dosage: 12 MG, UNK
     Route: 037
     Dates: start: 20170829, end: 20170829
  23. RUXOLITINIB [Suspect]
     Active Substance: RUXOLITINIB
     Dosage: 85 MG, BID
     Dates: start: 20170727, end: 20170806
  24. VINCRISTINE [Suspect]
     Active Substance: VINCRISTINE
     Dosage: 2 MG, SINGLE
     Route: 042
     Dates: start: 20170807, end: 20170807
  25. PEGASPARGASE [Suspect]
     Active Substance: PEGASPARGASE
     Indication: ACUTE LYMPHOCYTIC LEUKAEMIA
     Dosage: 4350 IU, SINGLE
     Route: 042
     Dates: start: 20170703, end: 20170703
  26. VINCRISTINE [Suspect]
     Active Substance: VINCRISTINE
     Dosage: 2 UNK, UNK
     Route: 042
     Dates: start: 20170922, end: 20170922
  27. CYTARABINE. [Suspect]
     Active Substance: CYTARABINE
     Dosage: 130 MG, QD
     Route: 058
     Dates: start: 20170626, end: 20170629
  28. CYTARABINE. [Suspect]
     Active Substance: CYTARABINE
     Dosage: 130 MG, QD
     Route: 058
     Dates: start: 20170731, end: 20170803
  29. PEGASPARGASE [Suspect]
     Active Substance: PEGASPARGASE
     Dosage: 4200 IU, SINGLE
     Route: 042
     Dates: start: 20170814, end: 20170814

REACTIONS (2)
  - Stomatitis [Recovering/Resolving]
  - Dehydration [Recovered/Resolved]

NARRATIVE: CASE EVENT DATE: 20170928
